FAERS Safety Report 16660002 (Version 1)
Quarter: 2019Q3

REPORT INFORMATION
  Report Type: Report from Study
  Country: CO (occurrence: CO)
  Receive Date: 20190802
  Receipt Date: 20190802
  Transmission Date: 20191004
  Serious: Yes (Hospitalization, Other)
  Sender: FDA-Public Use
  Company Number: PHHY2019CO176820

PATIENT
  Sex: Male
  Weight: 78 kg

DRUGS (3)
  1. GILENYA [Suspect]
     Active Substance: FINGOLIMOD HYDROCHLORIDE
     Indication: MULTIPLE SCLEROSIS
     Dosage: 0.5 MG, QD
     Route: 048
     Dates: start: 20121210
  2. CANNABIDIOL [Concomitant]
     Active Substance: CANNABIDIOL
     Indication: TENDON DISORDER
     Dosage: (5 TIMES IN THE MORNING AND 7 AT NIGHT)
     Route: 065
  3. AMANTADINE. [Concomitant]
     Active Substance: AMANTADINE HYDROCHLORIDE
     Indication: PRODUCT USED FOR UNKNOWN INDICATION
     Dosage: 2 DF, QD
     Route: 065

REACTIONS (4)
  - Movement disorder [Not Recovered/Not Resolved]
  - Hypertension [Recovering/Resolving]
  - Multiple sclerosis relapse [Recovered/Resolved]
  - Ocular hyperaemia [Recovered/Resolved]

NARRATIVE: CASE EVENT DATE: 2016
